FAERS Safety Report 9154448 (Version 1)
Quarter: 2013Q1

REPORT INFORMATION
  Report Type: Spontaneous
  Country: TW (occurrence: None)
  Receive Date: 20130307
  Receipt Date: 20130307
  Transmission Date: 20140127
  Serious: Yes (Death)
  Sender: FDA-Public Use
  Company Number: CLOZ20130005

PATIENT
  Age: 86 Year
  Sex: Male

DRUGS (8)
  1. CLONAZEPAM [Suspect]
     Indication: TREMOR
     Dosage: AT BED TIME
     Route: 048
  2. ESCITALOPRAM(ESCITALOPRAM) (10 MILLIGRAM, UNKNOWN) (ESCITALOPRAM) [Concomitant]
  3. RISPERIDONE TABLETS 1MG (RISPERIDONE)(1 MILLIGRAM, UNKNOWN)(RISPERIDONE) [Concomitant]
  4. DIPYRIDAMOLE (DIPYRIDAMOLE)(25 MILLIGRAM, UNKNOWN)(DIPYRIDAMOLE) [Concomitant]
  5. FLUNARIZINE (FLUNARIZINE)(5 MILLIGRAM, UNKNOWN) (FLUNARIZINE) [Concomitant]
  6. AMIODARONE (AMIODARONE)(200 MILLIGRAM, UNKNOWN)(AMIODARONE) [Concomitant]
  7. FUROSEMIDE TABLETS 20MG(FUROSEMIDE)(20 MILLIGRAM, UNKNOWN)(FUROSEMIDE) [Concomitant]
  8. CEFTAZIDIME (CEFTAZIDIME) (2 GRAM, UNKNOWN) (CEFTAZIDIME) [Concomitant]

REACTIONS (1)
  - Dermatitis bullous [None]
